FAERS Safety Report 8229020-6 (Version None)
Quarter: 2012Q1

REPORT INFORMATION
  Report Type: 
  Country: None (occurrence: None)
  Receive Date: 20120322
  Receipt Date: 20120315
  Transmission Date: 20120608
  Serious: Yes (Hospitalization, Other)
  Sender: FDA-Public Use
  Company Number: US-PFIZER INC-2012041703

PATIENT
  Sex: Male
  Weight: 69.388 kg

DRUGS (2)
  1. AMOXICILLIN [Suspect]
     Indication: CHRONIC SINUSITIS
     Dosage: 500 MG, 3X/DAY
     Route: 048
     Dates: start: 20111205, end: 20111216
  2. MECLIZINE [Concomitant]
     Indication: VERTIGO
     Dosage: UNK

REACTIONS (9)
  - TINNITUS [None]
  - DRUG INEFFECTIVE [None]
  - INFECTION [None]
  - SWELLING FACE [None]
  - VIITH NERVE PARALYSIS [None]
  - ABDOMINAL DISCOMFORT [None]
  - WEIGHT DECREASED [None]
  - PRODUCT COUNTERFEIT [None]
  - DYSURIA [None]
